FAERS Safety Report 5947551-6 (Version None)
Quarter: 2008Q4

REPORT INFORMATION
  Report Type: 
  Country: None (occurrence: None)
  Receive Date: 20081110
  Receipt Date: 20081103
  Transmission Date: 20090506
  Serious: Yes (Death, Hospitalization)
  Sender: FDA-Public Use
  Company Number: PHHY2008BR27004

PATIENT
  Age: 91 Year
  Sex: Female

DRUGS (3)
  1. DIOVAN [Suspect]
     Dosage: 320 MG
  2. EXELON [Suspect]
     Dosage: 9MG/5CM2
  3. SOMALGIN [Concomitant]
     Indication: CARDIAC DISORDER
     Dosage: UNK

REACTIONS (4)
  - BRONCHOPNEUMONIA [None]
  - LUNG DISORDER [None]
  - RENAL FAILURE [None]
  - SEPSIS [None]
